FAERS Safety Report 8021363-4 (Version None)
Quarter: 2012Q1

REPORT INFORMATION
  Report Type: 
  Country: None (occurrence: None)
  Receive Date: 20120104
  Receipt Date: 20111229
  Transmission Date: 20120608
  Serious: Yes (Hospitalization, Congenital Anomaly, Other)
  Sender: FDA-Public Use
  Company Number: US-PFIZER INC-2010109634

PATIENT
  Sex: Female
  Weight: 2.67 kg

DRUGS (1)
  1. ZOLOFT [Suspect]
     Dosage: 50 MG, UNK
     Route: 064
     Dates: start: 20020624

REACTIONS (24)
  - OTITIS MEDIA CHRONIC [None]
  - OPTIC NERVE CUP/DISC RATIO INCREASED [None]
  - MATERNAL DRUGS AFFECTING FOETUS [None]
  - FAILURE TO THRIVE [None]
  - MITRAL VALVE INCOMPETENCE [None]
  - PULMONARY VASCULAR DISORDER [None]
  - RESPIRATORY SYNCYTIAL VIRUS INFECTION [None]
  - STRABISMUS [None]
  - CAESAREAN SECTION [None]
  - CARDIAC FAILURE CONGESTIVE [None]
  - ADENOIDAL HYPERTROPHY [None]
  - VENTRICULAR SEPTAL DEFECT [None]
  - SLEEP APNOEA SYNDROME [None]
  - HYPERMETROPIA [None]
  - PREMATURE BABY [None]
  - PHARYNGOTONSILLITIS [None]
  - TONSILLAR HYPERTROPHY [None]
  - VISUAL IMPAIRMENT [None]
  - LEFT ATRIAL DILATATION [None]
  - BRONCHIOLITIS [None]
  - FEEDING DISORDER OF INFANCY OR EARLY CHILDHOOD [None]
  - FOETAL EXPOSURE DURING PREGNANCY [None]
  - DILATATION VENTRICULAR [None]
  - BLOOD GLUCOSE DECREASED [None]
